FAERS Safety Report 23060410 (Version 2)
Quarter: 2025Q3

REPORT INFORMATION
  Report Type: Spontaneous
  Country: EU (occurrence: EU)
  Receive Date: 20231012
  Receipt Date: 20250908
  Transmission Date: 20251020
  Serious: Yes (Other)
  Sender: TAKEDA
  Company Number: None

PATIENT
  Age: 74 Year
  Sex: Female
  Weight: 61 kg

DRUGS (23)
  1. LANSOPRAZOLE [Suspect]
     Active Substance: LANSOPRAZOLE
     Indication: Oesophagitis
     Dosage: 15 MILLIGRAM, QD
     Dates: end: 20230715
  2. ACETAMINOPHEN [Suspect]
     Active Substance: ACETAMINOPHEN
     Indication: Product used for unknown indication
  3. TRAMADOL HYDROCHLORIDE [Suspect]
     Active Substance: TRAMADOL HYDROCHLORIDE
     Indication: Product used for unknown indication
  4. FOLIC ACID [Suspect]
     Active Substance: FOLIC ACID
     Indication: Product used for unknown indication
  5. CLOXACILLIN SODIUM [Suspect]
     Active Substance: CLOXACILLIN SODIUM
     Indication: Intervertebral discitis
  6. CLOXACILLIN SODIUM [Suspect]
     Active Substance: CLOXACILLIN SODIUM
     Indication: Bacteraemia
     Dosage: 12 GIGABECQUEREL, QD
  7. CLOXACILLIN SODIUM [Suspect]
     Active Substance: CLOXACILLIN SODIUM
     Dosage: 8 GRAM, QD
     Dates: start: 20230607, end: 20230718
  8. HEPARIN [Suspect]
     Active Substance: HEPARIN SODIUM
     Indication: Product used for unknown indication
  9. RIFAMPIN [Suspect]
     Active Substance: RIFAMPIN
     Indication: Intervertebral discitis
     Dosage: 600 MILLIGRAM, QD
     Dates: start: 20230703, end: 20230714
  10. RIFAMPIN [Suspect]
     Active Substance: RIFAMPIN
     Indication: Endocarditis
     Dosage: 500 MILLIGRAM, BID
     Dates: start: 20230713
  11. RIFAMPIN [Suspect]
     Active Substance: RIFAMPIN
     Indication: Nausea
     Dosage: 600 MILLIGRAM, QD
     Dates: start: 20230719
  12. RIFAMPIN [Suspect]
     Active Substance: RIFAMPIN
     Indication: Vomiting
  13. GENTAMICIN SULFATE [Suspect]
     Active Substance: GENTAMICIN SULFATE
     Indication: Intervertebral discitis
  14. GENTAMICIN SULFATE [Suspect]
     Active Substance: GENTAMICIN SULFATE
     Indication: Bacteraemia
  15. GENTAMICIN SULFATE [Suspect]
     Active Substance: GENTAMICIN SULFATE
     Dates: start: 20230612, end: 20230615
  16. LOVENOX [Suspect]
     Active Substance: ENOXAPARIN SODIUM
     Indication: Product used for unknown indication
  17. LANTUS [Suspect]
     Active Substance: INSULIN GLARGINE
     Indication: Product used for unknown indication
  18. DIAZEPAM [Suspect]
     Active Substance: DIAZEPAM
     Indication: Product used for unknown indication
  19. POTASSIUM CHLORIDE [Suspect]
     Active Substance: POTASSIUM CHLORIDE
     Indication: Product used for unknown indication
  20. AMIODARONE HYDROCHLORIDE [Suspect]
     Active Substance: AMIODARONE HYDROCHLORIDE
     Indication: Atrial fibrillation
     Dates: start: 20230609, end: 20230609
  21. WARFARIN SODIUM [Suspect]
     Active Substance: WARFARIN SODIUM
     Indication: Product used for unknown indication
  22. ONDANSETRON [Suspect]
     Active Substance: ONDANSETRON
     Indication: Product used for unknown indication
     Dosage: 4 MILLIGRAM, QID
  23. ACUPAN [Suspect]
     Active Substance: NEFOPAM HYDROCHLORIDE
     Indication: Product used for unknown indication

REACTIONS (3)
  - Thrombocytopenia [Unknown]
  - Normocytic anaemia [Unknown]
  - Overdose [Unknown]

NARRATIVE: CASE EVENT DATE: 20230712
